FAERS Safety Report 21638820 (Version 2)
Quarter: 2023Q1

REPORT INFORMATION
  Report Type: Report from Study
  Country: CA (occurrence: CA)
  Receive Date: 20221124
  Receipt Date: 20230126
  Transmission Date: 20230417
  Serious: Yes (Death, Other)
  Sender: FDA-Public Use
  Company Number: CA-HLS-202202073

PATIENT
  Sex: Female

DRUGS (2)
  1. CLOZARIL [Suspect]
     Active Substance: CLOZAPINE
     Indication: Product used for unknown indication
     Route: 048
     Dates: start: 19980215, end: 20230120
  2. CLOZARIL [Suspect]
     Active Substance: CLOZAPINE
     Indication: Product used for unknown indication
     Dosage: UNKNOWN
     Route: 048
     Dates: start: 19980215

REACTIONS (2)
  - COVID-19 [Unknown]
  - Death [Fatal]
